FAERS Safety Report 9201801 (Version 1)
Quarter: 2013Q1

REPORT INFORMATION
  Report Type: Spontaneous
  Country: AU (occurrence: None)
  Receive Date: 20130327
  Receipt Date: 20130327
  Transmission Date: 20140127
  Serious: Yes (Hospitalization)
  Sender: FDA-Public Use
  Company Number: LORA20130001

PATIENT
  Age: 39 Year
  Sex: Female

DRUGS (2)
  1. LORAZEPAM [Suspect]
     Indication: SCHIZOPHRENIA
  2. RISPERIDONE (RISPERIDONE) [Concomitant]

REACTIONS (4)
  - Catatonia [None]
  - Psychotic disorder [None]
  - Treatment noncompliance [None]
  - Mental status changes [None]
